FAERS Safety Report 5593238-1 (Version None)
Quarter: 2008Q1

REPORT INFORMATION
  Report Type: 
  Country: None (occurrence: None)
  Receive Date: 20080115
  Receipt Date: 20080115
  Transmission Date: 20080703
  Serious: Yes (Hospitalization)
  Sender: FDA-Public Use
  Company Number: None

PATIENT
  Age: 59 Year
  Sex: Female
  Weight: 82 kg

DRUGS (1)
  1. REMICADE [Suspect]
     Indication: RHEUMATOID ARTHRITIS

REACTIONS (6)
  - AGGRESSION [None]
  - BACTERAEMIA [None]
  - HYPOXIA [None]
  - MENINGITIS [None]
  - OBSTRUCTIVE AIRWAYS DISORDER [None]
  - STREPTOCOCCAL IDENTIFICATION TEST POSITIVE [None]
